FAERS Safety Report 10924370 (Version 2)
Quarter: 2015Q2

REPORT INFORMATION
  Report Type: Spontaneous
  Country: US (occurrence: US)
  Receive Date: 20150318
  Receipt Date: 20150524
  Transmission Date: 20150821
  Serious: No
  Sender: FDA-Public Use
  Company Number: US-JNJFOC-20131211310

PATIENT
  Age: 40 Year
  Sex: Female

DRUGS (2)
  1. RADIATION THERAPY NOS [Suspect]
     Active Substance: RADIATION THERAPY
     Indication: BLOOD CORTICOTROPHIN
     Route: 065
  2. KETOCONAZOLE. [Suspect]
     Active Substance: KETOCONAZOLE
     Indication: BLOOD CORTICOTROPHIN
     Route: 065

REACTIONS (2)
  - Product use issue [Unknown]
  - Therapeutic response unexpected [Unknown]
